FAERS Safety Report 4924370-0 (Version None)
Quarter: 2006Q1

REPORT INFORMATION
  Report Type: 
  Country: None (occurrence: None)
  Receive Date: 20060227
  Receipt Date: 20060126
  Transmission Date: 20060701
  Serious: No
  Sender: FDA-Public Use
  Company Number: US-GLAXOSMITHKLINE-A0591079A

PATIENT
  Age: 30 Year
  Sex: Female

DRUGS (4)
  1. WELLBUTRIN XL [Suspect]
     Dosage: 300MG PER DAY
     Route: 048
     Dates: start: 20050601
  2. LITHIUM [Concomitant]
  3. IUD [Concomitant]
  4. CONCERTA [Concomitant]

REACTIONS (2)
  - ACNE [None]
  - RASH [None]
